FAERS Safety Report 17056195 (Version 2)
Quarter: 2020Q4

REPORT INFORMATION
  Report Type: Spontaneous
  Country: ES (occurrence: ES)
  Receive Date: 20191121
  Receipt Date: 20201001
  Transmission Date: 20210113
  Serious: Yes (Hospitalization, Other)
  Sender: FDA-Public Use
  Company Number: ES-SUN PHARMACEUTICAL INDUSTRIES LTD-2019RR-228435

PATIENT
  Age: 45 Year
  Sex: Female

DRUGS (2)
  1. GEMCITABINE. [Suspect]
     Active Substance: GEMCITABINE
     Indication: CHOLANGIOCARCINOMA
     Dosage: 2 CICLOS 1 27/05/2019 2 04/06/2019 ()
     Route: 042
     Dates: start: 20190527, end: 20190604
  2. CISPLATINO (644A) [Suspect]
     Active Substance: CISPLATIN
     Indication: CHOLANGIOCARCINOMA
     Dosage: 2 CICLOS, 1 27/05/2019 Y 2  04/06/2019 ()
     Route: 042
     Dates: start: 20190527, end: 20190604

REACTIONS (2)
  - Agranulocytosis [Recovered/Resolved]
  - Vomiting [Recovered/Resolved]

NARRATIVE: CASE EVENT DATE: 20190609
